FAERS Safety Report 6525961-6 (Version None)
Quarter: 2010Q1

REPORT INFORMATION
  Report Type: 
  Country: None (occurrence: None)
  Receive Date: 20100104
  Receipt Date: 20091223
  Transmission Date: 20100710
  Serious: Yes (Other)
  Sender: FDA-Public Use
  Company Number: PHHY2009CA24284

PATIENT
  Sex: Male

DRUGS (1)
  1. ZOMETA [Suspect]
     Indication: PROSTATE CANCER
     Dosage: 3 MG, Q3MO (EVERY 12 WEEKS)
     Route: 042
     Dates: start: 20090323

REACTIONS (9)
  - BLOOD CREATININE INCREASED [None]
  - CONDITION AGGRAVATED [None]
  - DEHYDRATION [None]
  - DYSPNOEA EXERTIONAL [None]
  - FEELING COLD [None]
  - GLOMERULAR FILTRATION RATE DECREASED [None]
  - HAEMOGLOBIN DECREASED [None]
  - PHYSICAL EXAMINATION ABNORMAL [None]
  - PROSTATIC SPECIFIC ANTIGEN INCREASED [None]
